FAERS Safety Report 4897705-5 (Version None)
Quarter: 2006Q1

REPORT INFORMATION
  Report Type: 
  Country: None (occurrence: None)
  Receive Date: 20060201
  Receipt Date: 20060120
  Transmission Date: 20060701
  Serious: Yes (Hospitalization)
  Sender: FDA-Public Use
  Company Number: US-AMGEN-US160539

PATIENT
  Sex: Female
  Weight: 81.2 kg

DRUGS (15)
  1. ARANESP [Suspect]
     Indication: RENAL FAILURE CHRONIC
     Route: 058
     Dates: start: 20030114
  2. FERROUS SULFATE TAB [Concomitant]
  3. SENOKOT [Concomitant]
  4. PROGRAF [Concomitant]
     Route: 048
  5. CELLCEPT [Concomitant]
     Route: 048
  6. ROCALTROL [Concomitant]
  7. COLACE [Concomitant]
     Route: 048
  8. BICITRA [Concomitant]
  9. FLONASE [Concomitant]
  10. IRON [Concomitant]
     Route: 048
  11. LOPRESSOR [Concomitant]
     Route: 048
  12. METROGEL [Concomitant]
     Route: 067
  13. SYNTHROID [Concomitant]
  14. LANTUS [Concomitant]
  15. PREDNISONE [Concomitant]

REACTIONS (5)
  - BLOOD CREATININE INCREASED [None]
  - PAPILLOMA VIRAL INFECTION [None]
  - RECTAL HAEMORRHAGE [None]
  - THERAPEUTIC RESPONSE DECREASED [None]
  - TREATMENT NONCOMPLIANCE [None]
